FAERS Safety Report 13781488 (Version 1)
Quarter: 2017Q3

REPORT INFORMATION
  Report Type: Report from Study
  Country: KR (occurrence: KR)
  Receive Date: 20170724
  Receipt Date: 20170724
  Transmission Date: 20171127
  Serious: Yes (Hospitalization)
  Sender: FDA-Public Use
  Company Number: KR-ROCHE-1951784

PATIENT
  Age: 70 Year
  Sex: Female

DRUGS (19)
  1. PANTOLOC [Concomitant]
     Active Substance: PANTOPRAZOLE SODIUM
     Dosage: 1 TAB
     Route: 048
     Dates: start: 20150224
  2. FOLIC ACID. [Concomitant]
     Active Substance: FOLIC ACID
     Dosage: 1 TAB
     Route: 048
     Dates: start: 20141013
  3. XYZAL [Concomitant]
     Active Substance: LEVOCETIRIZINE DIHYDROCHLORIDE
     Indication: ECZEMA ASTEATOTIC
     Dosage: 1 TAB
     Route: 048
     Dates: start: 20170427
  4. TAGEN-F [Concomitant]
     Indication: DIABETIC RETINOPATHY
     Dosage: 1 TAB
     Route: 048
  5. GASLON [Concomitant]
     Active Substance: IRSOGLADINE MALEATE
     Dosage: 1 TAB
     Route: 048
  6. DICAMAX [Concomitant]
     Dosage: 1 TAB
     Route: 048
     Dates: start: 20141013
  7. LASIX [Concomitant]
     Active Substance: FUROSEMIDE
     Indication: HYPERTENSION
     Dosage: 0.5 TAB
     Route: 048
  8. GLICLAZIDE [Concomitant]
     Active Substance: GLICLAZIDE
     Indication: DIABETES MELLITUS
     Dosage: 1 TAB
     Route: 048
  9. METHYLON [Concomitant]
     Active Substance: METHYLPREDNISOLONE
     Indication: RHEUMATOID ARTHRITIS
     Dosage: 1 TAB
     Route: 048
     Dates: start: 20170310, end: 20170628
  10. TRAJENTA [Concomitant]
     Active Substance: LINAGLIPTIN
     Indication: DIABETES MELLITUS
     Dosage: 1 TAB
     Route: 048
  11. COSOPT [Concomitant]
     Active Substance: DORZOLAMIDE HYDROCHLORIDE\TIMOLOL MALEATE
     Indication: GLAUCOMA
     Route: 065
     Dates: start: 20160428
  12. TOCILIZUMAB. [Suspect]
     Active Substance: TOCILIZUMAB
     Indication: RHEUMATOID ARTHRITIS
     Route: 058
     Dates: start: 20170504
  13. LIXIANA [Concomitant]
     Active Substance: EDOXABAN TOSYLATE
     Indication: CARDIAC FAILURE
     Dosage: 1 TAB
     Route: 048
  14. SIGMART [Concomitant]
     Active Substance: NICORANDIL
     Dosage: DRUG REPORTED AS CHOONGWAE SIGMART
     Route: 048
  15. EBASTEL [Concomitant]
     Active Substance: EBASTINE
     Indication: ECZEMA ASTEATOTIC
     Dosage: 1 TAB
     Route: 048
     Dates: start: 20170330
  16. LACTICARE ZEMAGIS [Concomitant]
     Indication: ECZEMA ASTEATOTIC
     Dosage: DRUG REPORTED AS LACTICARE JEMAZIS
     Route: 065
     Dates: start: 20170330
  17. DOXOFYLLINE [Concomitant]
     Active Substance: DOXOFYLLINE
     Indication: ASTHMA
     Dosage: 1 TAB
     Route: 048
  18. METHOTREXATE. [Concomitant]
     Active Substance: METHOTREXATE
     Indication: RHEUMATOID ARTHRITIS
     Route: 048
     Dates: start: 20141027, end: 20170628
  19. AMOSARTAN [Concomitant]
     Indication: HYPERTENSION
     Dosage: 1 TAB
     Route: 048

REACTIONS (2)
  - Nasopharyngitis [Recovered/Resolved]
  - Diarrhoea [Recovered/Resolved]

NARRATIVE: CASE EVENT DATE: 20170527
